FAERS Safety Report 25793598 (Version 1)
Quarter: 2025Q3

REPORT INFORMATION
  Report Type: Spontaneous
  Country: QA (occurrence: QA)
  Receive Date: 20250912
  Receipt Date: 20250912
  Transmission Date: 20251020
  Serious: Yes (Life-Threatening, Hospitalization, Other)
  Sender: ENDO
  Company Number: QA-ENDO USA, INC.-2025-001917

PATIENT
  Age: 58 Year
  Sex: Male

DRUGS (4)
  1. KETALAR [Suspect]
     Active Substance: KETAMINE HYDROCHLORIDE
     Indication: Sedative therapy
     Dosage: 50 MILLIGRAM, SINGLE
     Route: 042
     Dates: start: 202301, end: 202301
  2. ALBUTEROL [Concomitant]
     Active Substance: ALBUTEROL
     Indication: Obstructive airways disorder
  3. IPRATROPIUM [Concomitant]
     Active Substance: IPRATROPIUM
     Indication: Obstructive airways disorder
  4. CORTICOSTEROID NOS [Concomitant]
     Active Substance: CORTICOSTEROID NOS
     Indication: Obstructive airways disorder

REACTIONS (5)
  - Pulmonary oedema [Recovered/Resolved]
  - Cardiogenic shock [Recovered/Resolved]
  - Myocardial injury [Recovered/Resolved]
  - Depressed level of consciousness [Recovered/Resolved]
  - Agitation [Recovered/Resolved]

NARRATIVE: CASE EVENT DATE: 20230101
